FAERS Safety Report 18676721 (Version 2)
Quarter: 2021Q1

REPORT INFORMATION
  Report Type: Spontaneous
  Country: AR (occurrence: AR)
  Receive Date: 20201229
  Receipt Date: 20210108
  Transmission Date: 20210419
  Serious: Yes (Hospitalization)
  Sender: FDA-Public Use
  Company Number: AR-PFIZER INC-2020510628

PATIENT
  Age: 77 Year
  Sex: Female

DRUGS (1)
  1. XELJANZ [Suspect]
     Active Substance: TOFACITINIB CITRATE
     Indication: RHEUMATOID ARTHRITIS
     Dosage: 5 MG, 2X/DAY
     Dates: start: 20151008, end: 20201025

REACTIONS (6)
  - Hiatus hernia [Unknown]
  - Osteoarthritis [Unknown]
  - COVID-19 [Recovered/Resolved with Sequelae]
  - Product prescribing issue [Unknown]
  - Prolapse [Unknown]
  - Blood disorder [Unknown]

NARRATIVE: CASE EVENT DATE: 2020
